FAERS Safety Report 16736589 (Version 3)
Quarter: 2019Q4

REPORT INFORMATION
  Report Type: Spontaneous
  Country: US (occurrence: US)
  Receive Date: 20190823
  Receipt Date: 20191126
  Transmission Date: 20200122
  Serious: Yes (Hospitalization, Other)
  Sender: FDA-Public Use
  Company Number: US-BIOCODEX SA-201900711

PATIENT

DRUGS (2)
  1. DIACOMIT [Suspect]
     Active Substance: STIRIPENTOL
     Indication: PRODUCT USED FOR UNKNOWN INDICATION
     Dosage: 500MG TWICE DAILY
     Route: 048
  2. DIACOMIT [Suspect]
     Active Substance: STIRIPENTOL
     Indication: PRODUCT USED FOR UNKNOWN INDICATION
     Dosage: TAKE 2 SACHETS OF 250MG MIXED WITH 100 ML OF WATER BY MOUTH TWICE DAILY
     Route: 048
     Dates: start: 20190613

REACTIONS (4)
  - Product dose omission [Unknown]
  - Hospitalisation [Unknown]
  - Seizure [Unknown]
  - Pruritus [Unknown]

NARRATIVE: CASE EVENT DATE: 20191111
